FAERS Safety Report 22041848 (Version 5)
Quarter: 2025Q2

REPORT INFORMATION
  Report Type: Spontaneous
  Country: FR (occurrence: FR)
  Receive Date: 20230227
  Receipt Date: 20250509
  Transmission Date: 20250716
  Serious: Yes (Life-Threatening, Other)
  Sender: VERTEX
  Company Number: None

PATIENT
  Age: 39 Year
  Sex: Female
  Weight: 46 kg

DRUGS (13)
  1. ELEXACAFTOR\IVACAFTOR\TEZACAFTOR [Suspect]
     Active Substance: ELEXACAFTOR\IVACAFTOR\TEZACAFTOR
     Indication: Cystic fibrosis
     Route: 048
     Dates: start: 20210801
  2. KALYDECO [Suspect]
     Active Substance: IVACAFTOR
     Indication: Cystic fibrosis
     Route: 048
     Dates: start: 20210801, end: 20221019
  3. PANTOPRAZOLE [Concomitant]
     Active Substance: PANTOPRAZOLE
  4. CREON [Concomitant]
     Active Substance: PANCRELIPASE AMYLASE\PANCRELIPASE LIPASE\PANCRELIPASE PROTEASE
  5. FIASP [Concomitant]
     Active Substance: INSULIN ASPART
  6. TOUJEO [Concomitant]
     Active Substance: INSULIN GLARGINE
  7. SPASFON [Concomitant]
  8. MINERAL OIL [Concomitant]
     Active Substance: MINERAL OIL
  9. PANCREATIN [Concomitant]
     Active Substance: PANCRELIPASE
  10. BECLOMETHASONE DIPROPIONATE\FORMOTEROL [Concomitant]
     Active Substance: BECLOMETHASONE DIPROPIONATE\FORMOTEROL
  11. MINERAL OIL [Concomitant]
     Active Substance: MINERAL OIL
  12. PHLOROGLUCINOL [Concomitant]
     Active Substance: PHLOROGLUCINOL
  13. INSULIN NOS [Concomitant]
     Active Substance: INSULIN NOS

REACTIONS (6)
  - Suicide attempt [Recovered/Resolved]
  - Overdose [Recovered/Resolved]
  - Anxiety [Unknown]
  - Decreased appetite [Unknown]
  - Insomnia [Recovering/Resolving]
  - Depression [Recovering/Resolving]

NARRATIVE: CASE EVENT DATE: 20210801
